FAERS Safety Report 6929964-9 (Version None)
Quarter: 2010Q3

REPORT INFORMATION
  Report Type: 
  Country: None (occurrence: None)
  Receive Date: 20100818
  Receipt Date: 20100809
  Transmission Date: 20110219
  Serious: Yes (Other)
  Sender: FDA-Public Use
  Company Number: US-BAXTER-2010BH021292

PATIENT

DRUGS (1)
  1. SODIUM CHLORIDE 0.9% IN PLASTIC CONTAINER [Suspect]
     Indication: PRODUCT USED FOR UNKNOWN INDICATION
     Route: 065
     Dates: start: 20100101

REACTIONS (4)
  - BACTERIAL INFECTION [None]
  - BACTERIAL TEST POSITIVE [None]
  - LIQUID PRODUCT PHYSICAL ISSUE [None]
  - PRODUCT CONTAMINATION PHYSICAL [None]
